FAERS Safety Report 5984371-0 (Version None)
Quarter: 2008Q4

REPORT INFORMATION
  Report Type: 
  Country: None (occurrence: None)
  Receive Date: 20081208
  Receipt Date: 20081201
  Transmission Date: 20090506
  Serious: Yes (Other)
  Sender: FDA-Public Use
  Company Number: PHHY2008DE30492

PATIENT
  Sex: Male

DRUGS (7)
  1. RASILEZ [Suspect]
     Indication: HYPERTENSION
     Dosage: 150 MG/D
     Dates: start: 20081126
  2. NEBILET [Concomitant]
     Indication: HYPERTENSION
     Dosage: UNK
  3. CANDESARTAN [Concomitant]
     Dosage: UNK
  4. DILTIAZEM [Concomitant]
     Indication: HYPERTENSION
     Dosage: UNK
  5. GODAMED [Concomitant]
     Dosage: UNK
  6. VIANI [Concomitant]
     Dosage: UNK
  7. ALLOPURINOL [Concomitant]
     Dosage: UNK

REACTIONS (4)
  - ANGINA PECTORIS [None]
  - BLOOD PRESSURE SYSTOLIC INCREASED [None]
  - CHEST PAIN [None]
  - HYPERTENSIVE CRISIS [None]
